FAERS Safety Report 18114440 (Version 1)
Quarter: 2020Q3

REPORT INFORMATION
  Report Type: Report from Study
  Country: CA (occurrence: CA)
  Receive Date: 20200805
  Receipt Date: 20200805
  Transmission Date: 20201103
  Serious: Yes (Hospitalization)
  Sender: FDA-Public Use
  Company Number: CA-JNJFOC-20200714260

PATIENT
  Age: 13 Year
  Sex: Male
  Weight: 38 kg

DRUGS (2)
  1. REMICADE [Suspect]
     Active Substance: INFLIXIMAB
     Indication: COLITIS ULCERATIVE
     Route: 042
     Dates: start: 20190124
  2. REMICADE [Suspect]
     Active Substance: INFLIXIMAB
     Dosage: ON 28?JUL?2020, THE PATIENT RECEIVED 20TH INFLIXIMAB INFUSION FOR DOSE OF 400 MG
     Route: 042

REACTIONS (5)
  - Headache [Unknown]
  - Frequent bowel movements [Unknown]
  - Abdominal pain [Unknown]
  - Diarrhoea [Unknown]
  - Mucous stools [Unknown]

NARRATIVE: CASE EVENT DATE: 20200629
